FAERS Safety Report 9207064 (Version 1)
Quarter: 2013Q2

REPORT INFORMATION
  Report Type: Spontaneous
  Country: DE (occurrence: DE)
  Receive Date: 20130403
  Receipt Date: 20130403
  Transmission Date: 20140414
  Serious: Yes (Hospitalization)
  Sender: FDA-Public Use
  Company Number: GXKR2013DE001289

PATIENT
  Age: 7 Year
  Sex: Male
  Weight: 22 kg

DRUGS (18)
  1. FLUCONAZOL [Suspect]
     Indication: URINARY TRACT INFECTION FUNGAL
     Dosage: 125 MG, Q72H
     Route: 042
     Dates: start: 20110429, end: 20110516
  2. SANDIMMUN OPTORAL [Interacting]
     Dosage: 80-0-75
     Route: 048
     Dates: start: 20110413, end: 20110531
  3. CELLCEPT [Concomitant]
     Dosage: 500 MG, BID
     Route: 048
     Dates: start: 20110412
  4. OMEPRAZOLE [Concomitant]
     Dosage: 10 MG, BID
     Route: 048
     Dates: start: 20110413
  5. SODIUM BICARBONATE [Concomitant]
     Dosage: 10 ML, BID
     Route: 065
     Dates: start: 20110512
  6. KEPINOL [Concomitant]
     Dosage: 40 MG, BID
     Route: 048
     Dates: start: 20110413
  7. ACICLOVIR [Concomitant]
     Dosage: 200 MG, BID
     Route: 048
     Dates: start: 20110520
  8. NEORECORMON [Concomitant]
     Dosage: 5000 IU, QW2
     Route: 042
     Dates: start: 200801
  9. CEFUROXIME [Concomitant]
     Dosage: 500 MG, TID
     Route: 042
     Dates: start: 20110413, end: 20110522
  10. DECORTIN [Concomitant]
     Dosage: 25 MG, QD
     Dates: start: 20110413
  11. DECORTIN [Concomitant]
     Dosage: 10 MG, QD
     Route: 048
     Dates: start: 20110520
  12. DORMICUM                                /GFR/ [Concomitant]
     Dosage: 4 MG, QD
     Route: 042
     Dates: start: 20110521, end: 20110521
  13. DORMICUM                                /GFR/ [Concomitant]
     Dosage: 2.5 MG, BID
     Route: 042
     Dates: start: 20110522, end: 20110522
  14. KETANEST [Concomitant]
     Dosage: 15 MG, QD
     Route: 042
     Dates: start: 20110521, end: 20110521
  15. KETANEST [Concomitant]
     Dosage: 25 MG, BID
     Route: 042
     Dates: start: 20110522, end: 20110522
  16. METAMIZOLE [Concomitant]
     Dosage: 250 MG, QD
     Route: 042
     Dates: start: 20110522, end: 20110522
  17. PERFALGAN [Concomitant]
     Dosage: 250 MG, BID
     Route: 042
     Dates: start: 20110522, end: 20110522
  18. LASIX [Concomitant]
     Dosage: 20 MG, QD
     Route: 042
     Dates: start: 20110521, end: 20110521

REACTIONS (2)
  - Encephalitis [Recovering/Resolving]
  - Disturbance in attention [Recovering/Resolving]
